FAERS Safety Report 21726851 (Version 1)
Quarter: 2022Q4

REPORT INFORMATION
  Report Type: Spontaneous
  Country: CN (occurrence: CN)
  Receive Date: 20221214
  Receipt Date: 20221214
  Transmission Date: 20230112
  Serious: Yes (Other)
  Sender: FDA-Public Use
  Company Number: None

PATIENT
  Age: 51 Year
  Sex: Female
  Weight: 54.2 kg

DRUGS (4)
  1. CYCLOPHOSPHAMIDE [Suspect]
     Active Substance: CYCLOPHOSPHAMIDE
     Indication: Chemotherapy
     Dosage: 0.20 G, QD, DILUTED WITH 100 ML 0.9% SODIUM CHLORIDE
     Route: 041
     Dates: start: 20221122, end: 20221122
  2. SODIUM CHLORIDE [Suspect]
     Active Substance: SODIUM CHLORIDE
     Indication: Medication dilution
     Dosage: 100 ML, QD, USED TO DILUTE 0.20 G CYCLOPHOSPHAMIDE
     Route: 041
     Dates: start: 20221122, end: 20221122
  3. SODIUM CHLORIDE [Suspect]
     Active Substance: SODIUM CHLORIDE
     Dosage: 100 ML, QD, USED TO DILUTE 90 MG DOXORUBICIN HYDROCHLORIDE
     Route: 041
     Dates: start: 20221122, end: 20221122
  4. DOXORUBICIN HYDROCHLORIDE [Suspect]
     Active Substance: DOXORUBICIN HYDROCHLORIDE
     Indication: Chemotherapy
     Dosage: 90 MG, QD, DILUTED WITH 100 ML 0.9% SODIUM CHLORIDE
     Route: 041
     Dates: start: 20221122, end: 20221122

REACTIONS (1)
  - Myelosuppression [Recovering/Resolving]

NARRATIVE: CASE EVENT DATE: 20221202
